FAERS Safety Report 14900986 (Version 1)
Quarter: 2018Q2

REPORT INFORMATION
  Report Type: Spontaneous
  Country: US (occurrence: US)
  Receive Date: 20180429
  Receipt Date: 20180429
  Transmission Date: 20180711
  Serious: Yes (Other)
  Sender: FDA-Public Use
  Company Number: None

PATIENT

DRUGS (1)
  1. FINAPESIA (FINASTERIDE) [Suspect]
     Active Substance: FINASTERIDE

REACTIONS (3)
  - Loss of libido [None]
  - Erectile dysfunction [None]
  - Decreased interest [None]
